FAERS Safety Report 13742268 (Version 1)
Quarter: 2017Q3

REPORT INFORMATION
  Report Type: Spontaneous
  Country: FR (occurrence: FR)
  Receive Date: 20170711
  Receipt Date: 20170711
  Transmission Date: 20171127
  Serious: Yes (Other)
  Sender: FDA-Public Use
  Company Number: PHHY2011FR08212

PATIENT
  Age: 78 Year
  Sex: Female

DRUGS (1)
  1. CARTEOLOL [Suspect]
     Active Substance: CARTEOLOL
     Dosage: UNK
     Route: 047

REACTIONS (2)
  - Paraesthesia [Recovered/Resolved]
  - Raynaud^s phenomenon [Recovered/Resolved]

NARRATIVE: CASE EVENT DATE: 20110112
